FAERS Safety Report 23421613 (Version 1)
Quarter: 2024Q1

REPORT INFORMATION
  Report Type: Other
  Country: IN (occurrence: None)
  Receive Date: 20240119
  Receipt Date: 20240119
  Transmission Date: 20240409
  Serious: Yes (Other)
  Sender: FDA-Public Use
  Company Number: IN-ROCHE-3493638

PATIENT
  Age: 18 Year
  Sex: Female

DRUGS (1)
  1. BEVACIZUMAB [Suspect]
     Active Substance: BEVACIZUMAB
     Indication: Retinal detachment
     Route: 050

REACTIONS (3)
  - Blindness [Unknown]
  - Off label use [Unknown]
  - Off label use [Unknown]
